FAERS Safety Report 25318385 (Version 7)
Quarter: 2025Q3

REPORT INFORMATION
  Report Type: Spontaneous
  Country: US (occurrence: US)
  Receive Date: 20250515
  Receipt Date: 20250929
  Transmission Date: 20251020
  Serious: Yes (Hospitalization, Other)
  Sender: PFIZER
  Company Number: US-PFIZER INC-202500070369

PATIENT
  Age: 67 Year
  Sex: Male
  Weight: 62.6 kg

DRUGS (5)
  1. ADCETRIS [Suspect]
     Active Substance: BRENTUXIMAB VEDOTIN
     Dosage: 110 MG, EVERY 3 WEEKS
     Route: 042
     Dates: start: 20250416
  2. ADCETRIS [Suspect]
     Active Substance: BRENTUXIMAB VEDOTIN
     Dates: start: 20250507
  3. ADCETRIS [Suspect]
     Active Substance: BRENTUXIMAB VEDOTIN
     Dates: start: 20250525
  4. ADCETRIS [Suspect]
     Active Substance: BRENTUXIMAB VEDOTIN
     Dates: start: 20250618
  5. ADCETRIS [Suspect]
     Active Substance: BRENTUXIMAB VEDOTIN
     Dosage: 120MG EVERY 21 DAYS
     Route: 042
     Dates: end: 20250709

REACTIONS (4)
  - Enterovesical fistula [Recovering/Resolving]
  - Peritoneal abscess [Recovering/Resolving]
  - Weight increased [Unknown]
  - Off label use [Unknown]

NARRATIVE: CASE EVENT DATE: 20250416
